FAERS Safety Report 19565026 (Version 1)
Quarter: 2021Q3

REPORT INFORMATION
  Report Type: Spontaneous
  Country: CN (occurrence: CN)
  Receive Date: 20210716
  Receipt Date: 20210716
  Transmission Date: 20211014
  Serious: Yes (Hospitalization, Other)
  Sender: FDA-Public Use
  Company Number: CN-PFIZER INC-2021822978

PATIENT
  Age: 47 Year
  Sex: Female
  Weight: 72 kg

DRUGS (6)
  1. PHARMORUBICIN [Suspect]
     Active Substance: EPIRUBICIN
     Indication: INVASIVE DUCTAL BREAST CARCINOMA
     Dosage: 160.0000 MG, 1X/DAY
     Route: 041
     Dates: start: 20210611, end: 20210611
  2. PHARMORUBICIN [Suspect]
     Active Substance: EPIRUBICIN
     Indication: MUCINOUS BREAST CARCINOMA
  3. ENDOXAN [CYCLOPHOSPHAMIDE] [Suspect]
     Active Substance: CYCLOPHOSPHAMIDE
     Indication: INVASIVE DUCTAL BREAST CARCINOMA
     Dosage: 1 G, 1X/DAY
     Route: 041
     Dates: start: 20210611, end: 20210611
  4. SODIUM CHLORIDE. [Concomitant]
     Active Substance: SODIUM CHLORIDE
     Indication: INVASIVE DUCTAL BREAST CARCINOMA
     Dosage: 100 ML, 1X/DAY
     Route: 041
     Dates: start: 20210611, end: 20210611
  5. ENDOXAN [CYCLOPHOSPHAMIDE] [Suspect]
     Active Substance: CYCLOPHOSPHAMIDE
     Indication: MUCINOUS BREAST CARCINOMA
  6. SODIUM CHLORIDE. [Concomitant]
     Active Substance: SODIUM CHLORIDE
     Indication: MUCINOUS BREAST CARCINOMA

REACTIONS (1)
  - Myelosuppression [Recovering/Resolving]

NARRATIVE: CASE EVENT DATE: 20210617
